APPROVED DRUG PRODUCT: DICYCLOMINE HYDROCHLORIDE (PRESERVATIVE FREE)
Active Ingredient: DICYCLOMINE HYDROCHLORIDE
Strength: 10MG/ML
Dosage Form/Route: INJECTABLE;INJECTION
Application: A040465 | Product #001 | TE Code: AP
Applicant: HIKMA PHARMACEUTICALS USA INC
Approved: Jun 30, 2003 | RLD: No | RS: Yes | Type: RX